FAERS Safety Report 24040516 (Version 2)
Quarter: 2024Q3

REPORT INFORMATION
  Report Type: Spontaneous
  Country: MY (occurrence: MY)
  Receive Date: 20240702
  Receipt Date: 20240705
  Transmission Date: 20241016
  Serious: Yes (Other)
  Sender: PFIZER
  Company Number: MY-MLMSERVICE-20240620-PI100124-00255-1

PATIENT
  Age: 73 Year
  Sex: Male

DRUGS (2)
  1. PACLITAXEL [Suspect]
     Active Substance: PACLITAXEL
     Indication: Lung adenocarcinoma
     Dosage: 175 MG/M2, CYCLIC
     Route: 042
  2. CARBOPLATIN [Suspect]
     Active Substance: CARBOPLATIN
     Indication: Lung adenocarcinoma
     Dosage: AUC 5 WITH 20 PERCENT DOSE REDUCTION , CYCLIC
     Route: 042

REACTIONS (1)
  - Neutropenic sepsis [Unknown]
